FAERS Safety Report 26043190 (Version 2)
Quarter: 2025Q4

REPORT INFORMATION
  Report Type: Spontaneous
  Country: EG (occurrence: EG)
  Receive Date: 20251113
  Receipt Date: 20251124
  Transmission Date: 20260118
  Serious: Yes (Hospitalization, Other)
  Sender: NOVO NORDISK
  Company Number: EG-NOVOPROD-1558910

PATIENT
  Age: 551 Month
  Sex: Male

DRUGS (7)
  1. EZETIMIBE\ROSUVASTATIN [Concomitant]
     Active Substance: EZETIMIBE\ROSUVASTATIN
     Indication: Lipids
     Dosage: UNK, QD
     Route: 048
     Dates: start: 202505
  2. CELIPROLOL [Concomitant]
     Active Substance: CELIPROLOL
     Indication: Hypertension
     Dosage: UNK, QD
     Route: 048
     Dates: start: 2018
  3. .ALPHA.-LIPOIC ACID [Concomitant]
     Active Substance: .ALPHA.-LIPOIC ACID
     Indication: Adverse event
     Dosage: UNK, QD
     Route: 048
  4. BENFOTIAMINE\CYANOCOBALAMIN\PYRIDOXINE HYDROCHLORIDE [Concomitant]
     Active Substance: BENFOTIAMINE\CYANOCOBALAMIN\PYRIDOXINE HYDROCHLORIDE
     Indication: Adverse event
     Dosage: UNK, QD
     Route: 048
     Dates: start: 2014
  5. TRESIBA [Suspect]
     Active Substance: INSULIN DEGLUDEC
     Indication: Type 1 diabetes mellitus
     Dosage: 22 IU
     Route: 058
     Dates: start: 2018, end: 2025
  6. NOVORAPID [Suspect]
     Active Substance: INSULIN ASPART
     Indication: Type 1 diabetes mellitus
     Dosage: 20U/20U/20U DURING THE DAY
     Route: 058
     Dates: start: 2018
  7. NOVORAPID [Suspect]
     Active Substance: INSULIN ASPART
     Dosage: 10U WITH BREAKFAST, 10U WITH LUNCH AND 10U WITH DINNER.
     Route: 058

REACTIONS (2)
  - Diabetic hyperglycaemic coma [Recovered/Resolved]
  - Pelvi-ureteric obstruction [Recovering/Resolving]
